FAERS Safety Report 26051821 (Version 1)
Quarter: 2025Q4

REPORT INFORMATION
  Report Type: Spontaneous
  Country: US (occurrence: US)
  Receive Date: 20251117
  Receipt Date: 20251117
  Transmission Date: 20260117
  Serious: Yes (Life-Threatening, Hospitalization)
  Sender: MOLNLYCKE
  Company Number: US-Molnlycke-2188673

PATIENT
  Age: 43 Year
  Sex: Male

DRUGS (1)
  1. HIBICLENS [Suspect]
     Active Substance: CHLORHEXIDINE GLUCONATE
     Indication: Infection prophylaxis

REACTIONS (5)
  - Supraventricular tachycardia [Recovered/Resolved]
  - Diarrhoea [Recovered/Resolved]
  - Incorrect route of product administration [Recovered/Resolved]
  - Product communication issue [Recovered/Resolved]
  - Accidental overdose [Recovered/Resolved]
